FAERS Safety Report 17979356 (Version 1)
Quarter: 2020Q3

REPORT INFORMATION
  Report Type: Spontaneous
  Country: ES (occurrence: ES)
  Receive Date: 20200703
  Receipt Date: 20200703
  Transmission Date: 20201103
  Serious: Yes (Hospitalization, Other)
  Sender: FDA-Public Use
  Company Number: ES-MICRO LABS LIMITED-ML2020-01917

PATIENT
  Age: 95 Year
  Sex: Female

DRUGS (12)
  1. ACENOCOUMAROL [Interacting]
     Active Substance: ACENOCOUMAROL
  2. FUROSEMIDE. [Suspect]
     Active Substance: FUROSEMIDE
  3. QUETIAPINE. [Interacting]
     Active Substance: QUETIAPINE
     Dosage: 50 MG/DAY
  4. LORAZEPAM. [Interacting]
     Active Substance: LORAZEPAM
     Dosage: 2 MG/DAY
  5. SERTRALINE [Interacting]
     Active Substance: SERTRALINE HYDROCHLORIDE
     Dosage: 50 MG/DAY
  6. SPIRONOLACTONE. [Interacting]
     Active Substance: SPIRONOLACTONE
  7. SIMVASTATIN. [Suspect]
     Active Substance: SIMVASTATIN
  8. LOSARTAN. [Interacting]
     Active Substance: LOSARTAN
  9. TRAMADOL/PARACETAMOL [Interacting]
     Active Substance: ACETAMINOPHEN\TRAMADOL
     Dosage: 37.5/325 MG AT BREAKFAST
  10. RISPERIDONE. [Interacting]
     Active Substance: RISPERIDONE
     Dosage: 4 MG/DAY
  11. OMEPRAZOLE. [Interacting]
     Active Substance: OMEPRAZOLE
     Dosage: 20 MG/DAY
  12. AMLODIPINE [Interacting]
     Active Substance: AMLODIPINE BESYLATE

REACTIONS (2)
  - Serotonin syndrome [Unknown]
  - Drug interaction [Unknown]
